FAERS Safety Report 15589792 (Version 1)
Quarter: 2018Q4

REPORT INFORMATION
  Report Type: Report from Study
  Country: IE (occurrence: IE)
  Receive Date: 20181106
  Receipt Date: 20181106
  Transmission Date: 20190205
  Serious: Yes (Hospitalization)
  Sender: FDA-Public Use
  Company Number: IE-ROCHE-2205451

PATIENT
  Sex: Male

DRUGS (1)
  1. OBINUTUZUMAB. [Suspect]
     Active Substance: OBINUTUZUMAB
     Indication: CHRONIC LYMPHOCYTIC LEUKAEMIA REFRACTORY
     Dosage: DOSE SPLIT OVER 2 CONSECUTIVE DAYS; 100 MG ON DAY 1 AND 900 MG ON DAY 2
     Route: 042

REACTIONS (2)
  - Cardiac pacemaker insertion [Unknown]
  - Asthenia [Unknown]

NARRATIVE: CASE EVENT DATE: 20181023
